FAERS Safety Report 25637212 (Version 2)
Quarter: 2025Q3

REPORT INFORMATION
  Report Type: Other
  Country: EU (occurrence: EU)
  Receive Date: 20250804
  Receipt Date: 20250827
  Transmission Date: 20251020
  Serious: Yes (Hospitalization)
  Sender: Atnahs Healthcare
  Company Number: None

PATIENT

DRUGS (11)
  1. VALIUM [Suspect]
     Active Substance: DIAZEPAM
     Indication: Product used for unknown indication
     Dosage: 10 DOSAGE FORM, DAILY
     Route: 065
  2. LORAZEPAM [Suspect]
     Active Substance: LORAZEPAM
     Indication: Product used for unknown indication
     Dosage: 5 DOSAGE FORM, DAILY
     Route: 065
  3. SUBUTEX [Suspect]
     Active Substance: BUPRENORPHINE HYDROCHLORIDE
     Indication: Product used for unknown indication
     Route: 042
     Dates: start: 2013, end: 2014
  4. METHADONE HYDROCHLORIDE [Suspect]
     Active Substance: METHADONE HYDROCHLORIDE
     Indication: Product used for unknown indication
     Route: 048
     Dates: start: 2014
  5. COCAINE [Suspect]
     Active Substance: COCAINE
     Indication: Drug abuse
     Route: 042
     Dates: start: 2008
  6. ALCOHOL [Suspect]
     Active Substance: ALCOHOL
     Indication: Alcohol abuse
     Route: 048
     Dates: start: 2005
  7. HEROIN [Suspect]
     Active Substance: DIAMORPHINE
     Indication: Drug dependence
     Route: 065
     Dates: start: 2008, end: 2014
  8. MORPHINE [Suspect]
     Active Substance: MORPHINE
     Indication: Drug dependence
     Route: 065
  9. LYSERGIDE [Suspect]
     Active Substance: LYSERGIDE
     Indication: Drug abuse
     Route: 048
     Dates: start: 2008, end: 2014
  10. MIDOMAFETAMINE [Suspect]
     Active Substance: MIDOMAFETAMINE
     Indication: Drug abuse
     Route: 048
     Dates: start: 2008, end: 2014
  11. KETAMINE [Suspect]
     Active Substance: KETAMINE
     Indication: Product used for unknown indication
     Route: 065
     Dates: start: 2008, end: 2014

REACTIONS (4)
  - Intentional product misuse [Recovering/Resolving]
  - Substance abuse [Recovering/Resolving]
  - Alcohol abuse [Recovering/Resolving]
  - Drug dependence [Recovering/Resolving]

NARRATIVE: CASE EVENT DATE: 20050101
